FAERS Safety Report 20957133 (Version 1)
Quarter: 2022Q2

REPORT INFORMATION
  Report Type: Spontaneous
  Country: US (occurrence: US)
  Receive Date: 20220614
  Receipt Date: 20220614
  Transmission Date: 20220720
  Serious: No
  Sender: FDA-Public Use
  Company Number: US-PFM-2020-20283

PATIENT
  Sex: Female
  Weight: 9.9 kg

DRUGS (3)
  1. HEMANGEOL [Suspect]
     Active Substance: PROPRANOLOL HYDROCHLORIDE
     Indication: Haemangioma
     Dosage: 4.9 ML IN THE MORNING AND 0.7 ML NIGHTLY FOR 3-4 DAYS AND INCREASE AS INSTRUCTED
     Route: 065
  2. HEMANGEOL [Suspect]
     Active Substance: PROPRANOLOL HYDROCHLORIDE
     Dosage: 5.5 ML, BID (2/DAY) WITH FOOD AS DIRECTED
     Route: 048
  3. HEMANGEOL [Suspect]
     Active Substance: PROPRANOLOL HYDROCHLORIDE
     Dosage: 5.5ML TWICE DAILY
     Route: 065

REACTIONS (6)
  - Ear pain [Unknown]
  - Somnolence [Unknown]
  - Decreased appetite [Unknown]
  - Product dose omission issue [Unknown]
  - Product use issue [Unknown]
  - Off label use [Unknown]
